FAERS Safety Report 7297916-8 (Version None)
Quarter: 2011Q1

REPORT INFORMATION
  Report Type: 
  Country: None (occurrence: None)
  Receive Date: 20110217
  Receipt Date: 20110215
  Transmission Date: 20110831
  Serious: Yes (Death)
  Sender: FDA-Public Use
  Company Number: DE-JNJFOC-20110105426

PATIENT
  Age: 12 Month
  Sex: Female

DRUGS (1)
  1. FENTANYL [Suspect]
     Indication: PRODUCT USED FOR UNKNOWN INDICATION
     Route: 048

REACTIONS (5)
  - ACCIDENTAL EXPOSURE [None]
  - INTENTIONAL DRUG MISUSE [None]
  - ANALGESIC DRUG LEVEL ABOVE THERAPEUTIC [None]
  - OFF LABEL USE [None]
  - LOSS OF CONSCIOUSNESS [None]
